FAERS Safety Report 18463906 (Version 1)
Quarter: 2020Q4

REPORT INFORMATION
  Report Type: Spontaneous
  Country: US (occurrence: US)
  Receive Date: 20201104
  Receipt Date: 20201104
  Transmission Date: 20210114
  Serious: No
  Sender: FDA-Public Use
  Company Number: US-BAYER-2020-231779

PATIENT
  Sex: Female
  Weight: 58.05 kg

DRUGS (5)
  1. LENVIMA [Suspect]
     Active Substance: LENVATINIB
     Indication: ENDOMETRIAL CANCER
     Dosage: 20 MG, QD
     Route: 048
     Dates: start: 20200621
  2. ZOFRAN [Concomitant]
     Active Substance: ONDANSETRON HYDROCHLORIDE
     Dosage: 4 MG, UNK
  3. CIPRO [Suspect]
     Active Substance: CIPROFLOXACIN HYDROCHLORIDE
     Indication: ENTEROCOLITIS INFECTIOUS
     Dosage: UNK
  4. OXYCODONE AND ACETAMINOPHEN [Concomitant]
     Active Substance: ACETAMINOPHEN\OXYCODONE HYDROCHLORIDE
     Dosage: UNK
  5. FLAGYL [Suspect]
     Active Substance: METRONIDAZOLE\METRONIDAZOLE HYDROCHLORIDE
     Indication: ENTEROCOLITIS INFECTIOUS
     Dosage: UNK

REACTIONS (10)
  - Oral pain [None]
  - Dyspnoea [None]
  - Vomiting [None]
  - Abdominal discomfort [None]
  - Pyrexia [None]
  - Oral discomfort [None]
  - Rash [None]
  - Mental status changes [None]
  - Constipation [None]
  - Weight decreased [None]
